FAERS Safety Report 5341515-1 (Version None)
Quarter: 2007Q2

REPORT INFORMATION
  Report Type: 
  Country: None (occurrence: None)
  Receive Date: 20070530
  Receipt Date: 20070530
  Transmission Date: 20071010
  Serious: Yes (Hospitalization)
  Sender: FDA-Public Use
  Company Number: None

PATIENT
  Sex: Female
  Weight: 65.7716 kg

DRUGS (14)
  1. BACTRIM DS [Suspect]
     Indication: PNEUMOCYSTIS JIROVECI PNEUMONIA
     Dosage: 1 TABLET DAILY ORAL
     Route: 048
     Dates: start: 20060619, end: 20060630
  2. BACTRIM DS [Suspect]
     Indication: PROPHYLAXIS
     Dosage: 1 TABLET DAILY ORAL
     Route: 048
     Dates: start: 20060619, end: 20060630
  3. HAART THERAPY [Concomitant]
  4. NEXIUM [Concomitant]
  5. VASOTEC [Concomitant]
  6. NORVASC [Concomitant]
  7. FERROUS SULFATE TAB [Concomitant]
  8. TYLENOL [Concomitant]
  9. METOPROLOL SUCCINATE [Concomitant]
  10. REGLAN [Concomitant]
  11. PHOSLO [Concomitant]
  12. DIFLUCAN [Concomitant]
  13. DAPSONE [Concomitant]
  14. GUIFENISEN DM [Concomitant]

REACTIONS (1)
  - PANCREATITIS [None]
